FAERS Safety Report 6602650-0 (Version None)
Quarter: 2010Q1

REPORT INFORMATION
  Report Type: 
  Country: None (occurrence: None)
  Receive Date: 20100218
  Receipt Date: 20100209
  Transmission Date: 20100710
  Serious: Yes (Hospitalization)
  Sender: FDA-Public Use
  Company Number: 006645

PATIENT
  Sex: Female

DRUGS (15)
  1. LORTAB [Suspect]
  2. CT-322 (INVESTIGATIONAL DRUG) [Suspect]
     Indication: NON-SMALL CELL LUNG CANCER
     Dosage: (131 MG QD INTRAVENOUS (NOT OTHERWISE SPECIFIED) )
     Route: 042
     Dates: start: 20091106, end: 20091224
  3. TAXOL [Suspect]
     Indication: NON-SMALL CELL LUNG CANCER
     Dosage: (344 MG QD INTRAVENOUS (NOT OTHERWISE SPECIFIED) )
     Route: 042
     Dates: start: 20091106, end: 20091218
  4. CARBOPLATIN [Suspect]
     Indication: NON-SMALL CELL LUNG CANCER
     Dosage: (693 MG QD INTRAVENOUS (NOT OTHERWISE SPECIFIED) )
     Route: 042
     Dates: start: 20091106, end: 20091218
  5. BEVACIZUMAB [Suspect]
     Indication: NON-SMALL CELL LUNG CANCER
     Dosage: (981 MG QD INTRAVENOUS (NOT OTHERWISE SPECIFIED) )
     Route: 042
     Dates: start: 20091106, end: 20091224
  6. PLACEBO [Suspect]
     Indication: NON-SMALL CELL LUNG CANCER
     Dosage: INTRAVENOUS (NOT OTHERWISE SPECIFIED0 )
     Route: 042
     Dates: start: 20091106, end: 20091224
  7. SYNTHROID [Concomitant]
  8. SIMVASTATIN [Concomitant]
  9. ATENOLOL [Concomitant]
  10. GLUCOVANCE /01503701/ [Concomitant]
  11. MELOXICAM [Concomitant]
  12. NIACIN [Concomitant]
  13. ASPIRIN [Concomitant]
  14. MULTI-VITAMIN [Concomitant]
  15. CENTRUM SILVER [Concomitant]

REACTIONS (9)
  - BLOOD GLUCOSE INCREASED [None]
  - BLOOD PRESSURE SYSTOLIC INCREASED [None]
  - CARDIOMEGALY [None]
  - CONSTIPATION [None]
  - DIZZINESS POSTURAL [None]
  - HAEMORRHOIDS [None]
  - PRESYNCOPE [None]
  - RECTAL HAEMORRHAGE [None]
  - URINARY TRACT INFECTION [None]
